FAERS Safety Report 15479630 (Version 1)
Quarter: 2018Q4

REPORT INFORMATION
  Report Type: Spontaneous
  Country: US (occurrence: US)
  Receive Date: 20181009
  Receipt Date: 20181009
  Transmission Date: 20190205
  Serious: No
  Sender: FDA-Public Use
  Company Number: US-TEVA-2018-US-961065

PATIENT
  Sex: Female

DRUGS (1)
  1. OMEPRCAP [Suspect]
     Active Substance: OMEPRAZOLE
     Indication: GASTROOESOPHAGEAL REFLUX DISEASE
     Dosage: DELAYED-RELEASE CAPSULES
     Route: 065
     Dates: start: 2017

REACTIONS (2)
  - Protein C deficiency [Unknown]
  - Vein disorder [Unknown]

NARRATIVE: CASE EVENT DATE: 2017
